FAERS Safety Report 7692744-3 (Version None)
Quarter: 2011Q3

REPORT INFORMATION
  Report Type: 
  Country: None (occurrence: None)
  Receive Date: 20110819
  Receipt Date: 20110815
  Transmission Date: 20111222
  Serious: Yes (Other)
  Sender: FDA-Public Use
  Company Number: US-US-EMD SERONO, INC.-7058325

PATIENT
  Sex: Male
  Weight: 41 kg

DRUGS (4)
  1. SAIZEN [Suspect]
     Route: 058
     Dates: start: 20080226, end: 20080807
  2. SAIZEN [Suspect]
     Indication: GROWTH HORMONE DEFICIENCY
     Route: 058
     Dates: start: 20061108, end: 20070213
  3. SAIZEN [Suspect]
     Route: 058
     Dates: start: 20070213, end: 20070821
  4. SAIZEN [Suspect]
     Route: 058
     Dates: start: 20070821, end: 20080226

REACTIONS (1)
  - FOOT FRACTURE [None]
